FAERS Safety Report 15091901 (Version 1)
Quarter: 2018Q2

REPORT INFORMATION
  Report Type: Spontaneous
  Country: US (occurrence: US)
  Receive Date: 20180629
  Receipt Date: 20180629
  Transmission Date: 20180711
  Serious: No
  Sender: FDA-Public Use
  Company Number: US-AMGEN-USASP2015081036

PATIENT
  Age: 71 Year
  Sex: Female

DRUGS (1)
  1. PROLIA [Suspect]
     Active Substance: DENOSUMAB
     Indication: OSTEOPOROSIS
     Dosage: UNK UNK, UNK
     Route: 065
     Dates: start: 201501

REACTIONS (10)
  - Pain [Unknown]
  - Quality of life decreased [Unknown]
  - Flatulence [Unknown]
  - Dizziness [Unknown]
  - Thirst [Unknown]
  - Insomnia [Unknown]
  - Fatigue [Unknown]
  - Paraesthesia [Unknown]
  - Asthenia [Unknown]
  - Feeling abnormal [Unknown]

NARRATIVE: CASE EVENT DATE: 20150804
